FAERS Safety Report 6736448-X (Version None)
Quarter: 2010Q2

REPORT INFORMATION
  Report Type: 
  Country: None (occurrence: None)
  Receive Date: 20100521
  Receipt Date: 20100513
  Transmission Date: 20101027
  Serious: Yes (Other)
  Sender: FDA-Public Use
  Company Number: IE-MEDIMMUNE-MEDI-0011022

PATIENT
  Sex: Female
  Weight: 5.5 kg

DRUGS (1)
  1. SYNAGIS [Suspect]
     Indication: RESPIRATORY SYNCYTIAL VIRUS INFECTION
     Route: 030
     Dates: start: 20100125

REACTIONS (3)
  - LOWER RESPIRATORY TRACT INFECTION [None]
  - MALAISE [None]
  - RESPIRATORY SYNCYTIAL VIRUS INFECTION [None]
